FAERS Safety Report 4707392-4 (Version None)
Quarter: 2005Q3

REPORT INFORMATION
  Report Type: 
  Country: None (occurrence: None)
  Receive Date: 20050705
  Receipt Date: 20050623
  Transmission Date: 20060218
  Serious: Yes (Hospitalization, Disabling)
  Sender: FDA-Public Use
  Company Number: UNC-LCCC-0109-002

PATIENT
  Age: 82 Year
  Sex: Male
  Weight: 84 kg

DRUGS (1)
  1. CELEBREX [Suspect]
     Indication: PROSTATE CANCER
     Dosage: 400 MG PO BID
     Route: 048

REACTIONS (4)
  - CARDIO-RESPIRATORY ARREST [None]
  - TRANSIENT ISCHAEMIC ATTACK [None]
  - URINARY TRACT INFECTION [None]
  - URINE OUTPUT DECREASED [None]
